FAERS Safety Report 13890391 (Version 1)
Quarter: 2017Q3

REPORT INFORMATION
  Report Type: Spontaneous
  Country: US (occurrence: US)
  Receive Date: 20170822
  Receipt Date: 20170822
  Transmission Date: 20171127
  Serious: Yes (Other)
  Sender: FDA-Public Use
  Company Number: US-LEXICON PHARMACEUTICALS, INC-17-1606-00699

PATIENT
  Sex: Male

DRUGS (14)
  1. EMLA [Concomitant]
     Active Substance: LIDOCAINE\PRILOCAINE
  2. ACETEMIN [Concomitant]
  3. HEPARIN [Concomitant]
     Active Substance: HEPARIN SODIUM
  4. SOMATULINE [Concomitant]
     Active Substance: LANREOTIDE ACETATE
  5. PRILOSEC [Concomitant]
     Active Substance: OMEPRAZOLE MAGNESIUM
  6. TELOTRISTAT ETHYL [Suspect]
     Active Substance: TELOTRISTAT ETHYL
     Indication: CARCINOID TUMOUR
     Route: 048
     Dates: start: 20170311
  7. XELODA [Concomitant]
     Active Substance: CAPECITABINE
  8. ALDACTONE [Concomitant]
     Active Substance: SPIRONOLACTONE
  9. TEMODAR [Concomitant]
     Active Substance: TEMOZOLOMIDE
  10. SANDOSTATIN [Concomitant]
     Active Substance: OCTREOTIDE ACETATE
  11. ZOFRAN [Concomitant]
     Active Substance: ONDANSETRON HYDROCHLORIDE
  12. LOMOTIL [Concomitant]
     Active Substance: ATROPINE SULFATE\DIPHENOXYLATE HYDROCHLORIDE
  13. LISINOPRIL. [Concomitant]
     Active Substance: LISINOPRIL
  14. COREG [Concomitant]
     Active Substance: CARVEDILOL

REACTIONS (2)
  - Urticaria [Not Recovered/Not Resolved]
  - Radioembolisation [Not Recovered/Not Resolved]

NARRATIVE: CASE EVENT DATE: 2017
